FAERS Safety Report 8504063-3 (Version None)
Quarter: 2012Q3

REPORT INFORMATION
  Report Type: 
  Country: None (occurrence: None)
  Receive Date: 20120711
  Receipt Date: 20120625
  Transmission Date: 20120928
  Serious: No
  Sender: FDA-Public Use
  Company Number: US-BAYER-2012-064050

PATIENT

DRUGS (3)
  1. ALEVE (CAPLET) [Suspect]
     Indication: MUSCULOSKELETAL STIFFNESS
     Dosage: UNK
     Route: 048
  2. ACETAMINOPHEN [Concomitant]
     Indication: MUSCULOSKELETAL STIFFNESS
  3. ROBAXACET [Concomitant]
     Indication: MUSCULOSKELETAL STIFFNESS

REACTIONS (1)
  - MUSCULOSKELETAL STIFFNESS [None]
